FAERS Safety Report 5776702-1 (Version None)
Quarter: 2008Q2

REPORT INFORMATION
  Report Type: 
  Country: None (occurrence: None)
  Receive Date: 20080618
  Receipt Date: 20080321
  Transmission Date: 20081010
  Serious: No
  Sender: FDA-Public Use
  Company Number: US-ASTRAZENECA-2008UW05767

PATIENT
  Age: 65 Year
  Sex: Female

DRUGS (7)
  1. SYMBICORT [Suspect]
     Indication: CHRONIC OBSTRUCTIVE PULMONARY DISEASE
     Dosage: 160/4.5 1 PUFF TWICE A DAY
     Route: 055
     Dates: start: 20070101
  2. SYMBICORT [Suspect]
     Indication: ILL-DEFINED DISORDER
     Dosage: 160/4.5 1 PUFF TWICE A DAY
     Route: 055
     Dates: start: 20070101
  3. SYMBICORT [Suspect]
     Indication: ASTHMA
     Dosage: 160/4.5 1 PUFF TWICE A DAY
     Route: 055
     Dates: start: 20070101
  4. BENICAR [Concomitant]
  5. CARDURA [Concomitant]
  6. ALBUTEROL [Concomitant]
  7. OXYGEN AT NIGHT [Concomitant]

REACTIONS (3)
  - INSOMNIA [None]
  - NASAL CONGESTION [None]
  - WHEEZING [None]
